FAERS Safety Report 7202910-9 (Version None)
Quarter: 2010Q4

REPORT INFORMATION
  Report Type: 
  Country: None (occurrence: None)
  Receive Date: 20101229
  Receipt Date: 20101223
  Transmission Date: 20110411
  Serious: Yes (Other)
  Sender: FDA-Public Use
  Company Number: IT-PFIZER INC-2010179463

PATIENT
  Age: 51 Year
  Sex: Female

DRUGS (3)
  1. LYRICA [Suspect]
     Dosage: 150 MG DAILY
     Dates: start: 20100901
  2. REMERON [Concomitant]
  3. EUTIROX [Concomitant]

REACTIONS (1)
  - HYPERTENSION [None]
